FAERS Safety Report 6979663-2 (Version None)
Quarter: 2010Q3

REPORT INFORMATION
  Report Type: 
  Country: None (occurrence: None)
  Receive Date: 20100910
  Receipt Date: 20100910
  Transmission Date: 20110219
  Serious: Yes (Hospitalization)
  Sender: FDA-Public Use
  Company Number: None

PATIENT
  Age: 64 Year
  Sex: Male
  Weight: 99.7913 kg

DRUGS (1)
  1. LACTULOSE [Suspect]
     Indication: CONSTIPATION
     Dosage: 2 TBSP 2X DAILY MOUTH
     Route: 048
     Dates: start: 20100809, end: 20100830

REACTIONS (2)
  - ABDOMINAL DISTENSION [None]
  - GROIN PAIN [None]
